FAERS Safety Report 9267469 (Version 1)
Quarter: 2013Q2

REPORT INFORMATION
  Report Type: Spontaneous
  Country: US (occurrence: US)
  Receive Date: 20130502
  Receipt Date: 20130502
  Transmission Date: 20140414
  Serious: Yes (Death, Hospitalization)
  Sender: FDA-Public Use
  Company Number: US-GLAXOSMITHKLINE-A0849312A

PATIENT
  Age: 66 Year
  Sex: Male
  Weight: 157.7 kg

DRUGS (8)
  1. AVANDIA [Suspect]
     Indication: DIABETES MELLITUS
     Dosage: 8MG PER DAY
     Route: 048
     Dates: start: 20000101
  2. AMARYL [Concomitant]
  3. PRINIVIL [Concomitant]
  4. PLAVIX [Concomitant]
  5. LASIX [Concomitant]
  6. POTASSIUM [Concomitant]
  7. LIPITOR [Concomitant]
  8. MONOPRIL [Concomitant]

REACTIONS (7)
  - Cerebrovascular accident [Unknown]
  - Myocardial infarction [Unknown]
  - Ischaemic cardiomyopathy [Unknown]
  - Atrioventricular block [Unknown]
  - Cardiac failure congestive [Unknown]
  - Arteriosclerosis [Fatal]
  - Coronary artery disease [Unknown]
